FAERS Safety Report 15603038 (Version 1)
Quarter: 2018Q4

REPORT INFORMATION
  Report Type: Spontaneous
  Country: MX (occurrence: MX)
  Receive Date: 20181109
  Receipt Date: 20181109
  Transmission Date: 20190205
  Serious: Yes (Death)
  Sender: FDA-Public Use
  Company Number: MX-PFIZER INC-2018451896

PATIENT
  Age: 55 Year
  Sex: Male

DRUGS (2)
  1. SUNITINIB MALATE. [Suspect]
     Active Substance: SUNITINIB MALATE
     Dosage: 37.5 /24 (4:2)
  2. SUNITINIB MALATE. [Suspect]
     Active Substance: SUNITINIB MALATE
     Indication: RENAL CELL CARCINOMA STAGE II
     Dosage: 50 MG, 1X/DAY (4:2), 6 CYCLES
     Dates: start: 20160527, end: 20170220

REACTIONS (2)
  - Gastrointestinal toxicity [Unknown]
  - Death [Fatal]
